FAERS Safety Report 8012907-7 (Version None)
Quarter: 2011Q4

REPORT INFORMATION
  Report Type: 
  Country: None (occurrence: None)
  Receive Date: 20111229
  Receipt Date: 20111223
  Transmission Date: 20120403
  Serious: Yes (Hospitalization, Other)
  Sender: FDA-Public Use
  Company Number: DE-JNJFOC-20111002012

PATIENT
  Age: 51 Year
  Sex: Female

DRUGS (9)
  1. RISPERDAL [Suspect]
     Indication: PRODUCT USED FOR UNKNOWN INDICATION
     Route: 048
     Dates: start: 20110831
  2. LORAZEPAM [Concomitant]
     Route: 065
     Dates: start: 20110831
  3. QUETIAPINE [Concomitant]
     Route: 065
     Dates: start: 20110831
  4. PALIPERIDONE [Suspect]
     Indication: PRODUCT USED FOR UNKNOWN INDICATION
     Route: 030
     Dates: start: 20110908, end: 20110908
  5. RISPERDAL [Suspect]
     Route: 048
     Dates: start: 20110926
  6. LORAZEPAM [Concomitant]
     Route: 065
     Dates: start: 20111129
  7. LORAZEPAM [Concomitant]
     Route: 065
     Dates: start: 20110926
  8. RISPERDAL [Suspect]
     Route: 048
     Dates: start: 20110904
  9. RISPERDAL [Suspect]
     Route: 048
     Dates: start: 20111017

REACTIONS (2)
  - ELECTROCARDIOGRAM QT PROLONGED [None]
  - HOSPITALISATION [None]
